FAERS Safety Report 11411311 (Version 2)
Quarter: 2015Q3

REPORT INFORMATION
  Report Type: Spontaneous
  Country: US (occurrence: US)
  Receive Date: 20150821
  Receipt Date: 20150903
  Transmission Date: 20151125
  Serious: No
  Sender: FDA-Public Use
  Company Number: US-ELI_LILLY_AND_COMPANY-US201006001362

PATIENT
  Sex: Male

DRUGS (9)
  1. HUMULIN R [Suspect]
     Active Substance: INSULIN HUMAN
     Dosage: 60 U, EACH EVENING
     Dates: start: 20100416
  2. HUMALOG [Suspect]
     Active Substance: INSULIN LISPRO
  3. METOPROLOL TARTRATE. [Concomitant]
     Active Substance: METOPROLOL TARTRATE
  4. VITAMIN D [Concomitant]
     Active Substance: CHOLECALCIFEROL
  5. METFORMIN [Concomitant]
     Active Substance: METFORMIN HYDROCHLORIDE
  6. HUMULIN R [Suspect]
     Active Substance: INSULIN HUMAN
     Indication: TYPE 1 DIABETES MELLITUS
     Dosage: 90 U, EACH MORNING
     Dates: start: 20100416
  7. LOVASTIN [Concomitant]
     Active Substance: LOVASTATIN
  8. HYDROCHLOROTHIAZIDE. [Concomitant]
     Active Substance: HYDROCHLOROTHIAZIDE
  9. CINNAMON. [Concomitant]
     Active Substance: CINNAMON

REACTIONS (3)
  - Blood glucose increased [Unknown]
  - Drug ineffective [Unknown]
  - Glycosylated haemoglobin increased [Unknown]
